FAERS Safety Report 18008417 (Version 3)
Quarter: 2021Q1

REPORT INFORMATION
  Report Type: Spontaneous
  Country: AT (occurrence: AT)
  Receive Date: 20200710
  Receipt Date: 20210103
  Transmission Date: 20210419
  Serious: Yes (Hospitalization)
  Sender: FDA-Public Use
  Company Number: AT-AMGEN-AUTSP2020106516

PATIENT
  Sex: Female
  Weight: 55 kg

DRUGS (31)
  1. TRASTUZUMAB. [Suspect]
     Active Substance: TRASTUZUMAB
     Dosage: 336 MILLIGRAM, Q3WK
     Route: 042
     Dates: start: 20190613
  2. TRASTUZUMAB. [Suspect]
     Active Substance: TRASTUZUMAB
     Dosage: 336 MILLIGRAM, Q3WK
     Route: 041
     Dates: start: 20181113, end: 20190516
  3. XGEVA [Concomitant]
     Active Substance: DENOSUMAB
     Indication: PRODUCT USED FOR UNKNOWN INDICATION
     Dosage: UNK
     Route: 065
     Dates: start: 20181215
  4. VINORELBINE [Suspect]
     Active Substance: VINORELBINE TARTRATE
     Indication: HER2 POSITIVE BREAST CANCER
     Dosage: 50 MILLIGRAM
     Route: 048
     Dates: start: 20180719, end: 20181130
  5. KYTRIL [Concomitant]
     Active Substance: GRANISETRON HYDROCHLORIDE
     Dosage: UNK
     Dates: start: 20190829, end: 20200213
  6. EUTHYROX [Concomitant]
     Active Substance: LEVOTHYROXINE SODIUM
  7. APREDNISLON [Concomitant]
     Active Substance: PREDNISOLONE
     Dosage: UNK
     Dates: start: 20190912, end: 20191114
  8. MAGNESIUM SUCCINATE [Concomitant]
     Dosage: UNK
     Dates: start: 20190819
  9. DEXAMETHASONE. [Concomitant]
     Active Substance: DEXAMETHASONE
     Dosage: UNK
     Dates: start: 20190829, end: 20200213
  10. ULSAL [Concomitant]
     Active Substance: RANITIDINE HYDROCHLORIDE
     Dosage: UNK
     Dates: start: 20180809, end: 20190704
  11. ONTRUZANT [Suspect]
     Active Substance: TRASTUZUMAB-DTTB
     Dosage: 336 MILLIGRAM, Q3WK
     Route: 042
     Dates: start: 20190613
  12. LETROZOLE. [Suspect]
     Active Substance: LETROZOLE
     Indication: HER2 POSITIVE BREAST CANCER
     Dosage: 2.5 MILLIGRAM, QD
     Route: 048
     Dates: start: 20190508
  13. FORTECORTIN [DEXAMETHASONE] [Concomitant]
     Active Substance: DEXAMETHASONE
  14. ZOFRAN [Concomitant]
     Active Substance: ONDANSETRON HYDROCHLORIDE
     Dosage: UNK
     Dates: start: 20190919
  15. VITAMINS WITH MINERALS [Concomitant]
     Active Substance: MINERALS\VITAMINS
     Dosage: UNK
     Dates: start: 20181205
  16. ONTRUZANT [Suspect]
     Active Substance: TRASTUZUMAB-DTTB
     Indication: HER2 POSITIVE BREAST CANCER
     Dosage: 336 MILLIGRAM, Q3WK
     Route: 042
     Dates: start: 20181129, end: 20190516
  17. AROMASIN [Suspect]
     Active Substance: EXEMESTANE
     Indication: HER2 POSITIVE BREAST CANCER
     Dosage: 25 MILLIGRAM, QD
     Route: 048
     Dates: start: 20180719
  18. TRASTUZUMAB EMTANSINE [Suspect]
     Active Substance: ADO-TRASTUZUMAB EMTANSINE
     Indication: HER2 POSITIVE BREAST CANCER
     Dosage: 201.6 MILLIGRAM, Q3WK
     Route: 042
     Dates: start: 20190829
  19. NAVELBINE [Suspect]
     Active Substance: VINORELBINE TARTRATE
     Indication: HER2 POSITIVE BREAST CANCER
     Dosage: 50 MILLIGRAM
     Route: 048
     Dates: start: 20180719
  20. BEPANTHEN EYE [Concomitant]
     Active Substance: DEXPANTHENOL\HYALURONATE SODIUM
     Indication: CONJUNCTIVITIS
     Dosage: UNK
     Dates: start: 20190221
  21. AZITHROMYCIN ANHYDROUS. [Concomitant]
     Active Substance: AZITHROMYCIN ANHYDROUS
  22. ONDANSAN [Concomitant]
     Active Substance: ONDANSETRON HYDROCHLORIDE
     Dosage: UNK
     Dates: start: 20180709, end: 20190206
  23. NOVALGIN (METAMIZOLE SODIUM) [Concomitant]
     Active Substance: METAMIZOLE SODIUM
     Dosage: UNK
     Dates: start: 20180727
  24. DEXABENE [Concomitant]
     Dosage: UNK
     Dates: start: 20180809, end: 20190704
  25. DUROTIV [Concomitant]
     Active Substance: ESOMEPRAZOLE
  26. TRASTUZUMAB. [Suspect]
     Active Substance: TRASTUZUMAB
     Indication: HER2 POSITIVE BREAST CANCER
     Dosage: 440 MILLIGRAM, Q3WK
     Route: 042
     Dates: start: 20180719
  27. PERTUZUMAB. [Suspect]
     Active Substance: PERTUZUMAB
     Indication: HER2 POSITIVE BREAST CANCER
     Dosage: 840 MILLIGRAM, Q3WK
     Route: 042
     Dates: start: 20180719
  28. MACROGOL [Concomitant]
     Active Substance: POLYETHYLENE GLYCOLS
     Dosage: UNK
     Dates: start: 20180719
  29. FEMARA [Suspect]
     Active Substance: LETROZOLE
     Indication: HER2 POSITIVE BREAST CANCER
     Dosage: 2.5 MILLIGRAM, QD
     Route: 048
     Dates: start: 20190508
  30. EXEMESTANE. [Suspect]
     Active Substance: EXEMESTANE
     Indication: HER2 POSITIVE BREAST CANCER
     Dosage: 25 MILLIGRAM, QD
     Route: 048
     Dates: start: 20180719
  31. FENISTIL [Concomitant]
     Active Substance: DIMETHINDENE
     Dosage: UNK
     Dates: start: 20180809, end: 20190704

REACTIONS (11)
  - Infusion related reaction [Recovered/Resolved]
  - Nausea [Recovered/Resolved]
  - Dry skin [Recovered/Resolved]
  - Mucosal dryness [Recovered/Resolved]
  - Diarrhoea [Not Recovered/Not Resolved]
  - Bone pain [Not Recovered/Not Resolved]
  - Dysphagia [Recovered/Resolved]
  - Off label use [Unknown]
  - Vertigo [Not Recovered/Not Resolved]
  - Pyrexia [Recovered/Resolved]
  - Pain [Recovering/Resolving]

NARRATIVE: CASE EVENT DATE: 20180719
